FAERS Safety Report 25536868 (Version 2)
Quarter: 2025Q3

REPORT INFORMATION
  Report Type: Spontaneous
  Country: EU (occurrence: EU)
  Receive Date: 20250710
  Receipt Date: 20250723
  Transmission Date: 20251020
  Serious: Yes (Other)
  Sender: TEVA
  Company Number: None

PATIENT
  Age: 55 Year
  Sex: Female
  Weight: 68 kg

DRUGS (1)
  1. HYDROCORTISONE [Suspect]
     Active Substance: HYDROCORTISONE
     Indication: Tertiary adrenal insufficiency
     Route: 048
     Dates: start: 20250202, end: 20250507

REACTIONS (2)
  - Adrenal insufficiency [Recovering/Resolving]
  - Product substitution issue [Unknown]
